FAERS Safety Report 5503380-9 (Version None)
Quarter: 2007Q4

REPORT INFORMATION
  Report Type: 
  Country: None (occurrence: None)
  Receive Date: 20071031
  Receipt Date: 20071023
  Transmission Date: 20080405
  Serious: Yes (Other)
  Sender: FDA-Public Use
  Company Number: GR-PFIZER INC-2007075927

PATIENT
  Age: 66 Year
  Sex: Female

DRUGS (3)
  1. SUTENT [Suspect]
     Indication: GASTROINTESTINAL STROMAL TUMOUR
     Route: 048
     Dates: start: 20070102, end: 20070813
  2. HYDROXOCOBALAMIN ACETATE [Concomitant]
     Indication: GASTRECTOMY
     Dosage: TEXT:1
  3. FERO-FOLIC [Concomitant]
     Indication: ANAEMIA
     Dosage: TEXT:1
     Dates: start: 20070809, end: 20070815

REACTIONS (1)
  - HEPATITIS [None]
